FAERS Safety Report 5699255-5 (Version None)
Quarter: 2008Q2

REPORT INFORMATION
  Report Type: 
  Country: None (occurrence: None)
  Receive Date: 20080407
  Receipt Date: 20080407
  Transmission Date: 20081010
  Serious: Yes (Other)
  Sender: FDA-Public Use
  Company Number: None

PATIENT
  Age: 24 Year
  Sex: Female
  Weight: 65.7716 kg

DRUGS (1)
  1. ALLERGY D CVS [Suspect]
     Indication: HYPERSENSITIVITY
     Dosage: 2 TABS 4HRS PO
     Route: 048
     Dates: start: 20071209, end: 20071209

REACTIONS (5)
  - DIZZINESS [None]
  - FEELING ABNORMAL [None]
  - HEART RATE IRREGULAR [None]
  - PALPITATIONS [None]
  - SOMNOLENCE [None]
